FAERS Safety Report 23955557 (Version 2)
Quarter: 2024Q3

REPORT INFORMATION
  Report Type: Spontaneous
  Country: GB (occurrence: GB)
  Receive Date: 20240610
  Receipt Date: 20240813
  Transmission Date: 20241017
  Serious: Yes (Disabling, Other)
  Sender: ORGANON
  Company Number: None

PATIENT
  Sex: Female

DRUGS (1)
  1. ELOCON [Suspect]
     Active Substance: MOMETASONE FUROATE
     Dosage: UNK

REACTIONS (1)
  - Topical steroid withdrawal reaction [Not Recovered/Not Resolved]

NARRATIVE: CASE EVENT DATE: 20240408
